FAERS Safety Report 8295679-0 (Version None)
Quarter: 2012Q2

REPORT INFORMATION
  Report Type: 
  Country: None (occurrence: None)
  Receive Date: 20120418
  Receipt Date: 20120411
  Transmission Date: 20120825
  Serious: Yes (Hospitalization)
  Sender: FDA-Public Use
  Company Number: US-ALEXION-A201200554

PATIENT
  Sex: Female

DRUGS (21)
  1. MULTI-VITAMIN [Concomitant]
     Dosage: UNK, QD
  2. COMBIVENT [Concomitant]
     Dosage: 2 PUFFS, BID
  3. TYLENOL (CAPLET) [Concomitant]
     Dosage: 650 MG, PRN
  4. SOLIRIS [Suspect]
     Indication: PAROXYSMAL NOCTURNAL HAEMOGLOBINURIA
     Dosage: 900 MG, Q2W
     Route: 042
  5. PROTONIX [Concomitant]
     Dosage: 40 MG, QD
  6. NITROGLYCERIN [Concomitant]
     Dosage: UNK, PRN
  7. LOVENOX [Concomitant]
     Dosage: 40 MG, QD
  8. LASIX [Concomitant]
     Dosage: 40 MG, QD
  9. ATENOLOL [Concomitant]
     Dosage: 25 MG, BID
  10. OXYCODONE HCL [Concomitant]
     Dosage: 5 MG, Q 4 HRS.
  11. CALCIUM + VITAMIN D [Concomitant]
     Dosage: 1 1/2 TAB, QD
  12. NORVASC [Concomitant]
     Dosage: 5 MG, QD
  13. HUMALOG [Concomitant]
     Indication: DIABETES MELLITUS
     Dosage: SLIDING SCALE
  14. ALLOPURINOL [Concomitant]
     Dosage: 10 MG, PRN
  15. TIMOLOL MALEATE [Concomitant]
     Dosage: 1 GTT, BID
     Route: 031
  16. CRESTOR [Concomitant]
     Dosage: 5 MG, QD
  17. GLIPIZIDE [Concomitant]
     Indication: DIABETES MELLITUS
     Dosage: 10 MG, PRN
  18. ALPHAGAN [Concomitant]
     Dosage: 1 GTT, BID
     Route: 031
  19. PREDNISONE TAB [Concomitant]
     Dosage: 2 MG, QD
  20. ASPIRIN [Concomitant]
     Dosage: 81 MG, QD
  21. PROCRIT [Concomitant]
     Dosage: 10,000 UNITS, UNK

REACTIONS (5)
  - ABDOMINAL PAIN [None]
  - HAEMOGLOBIN DECREASED [None]
  - INFECTED CYST [None]
  - CHROMATURIA [None]
  - URINARY TRACT INFECTION [None]
